FAERS Safety Report 15994690 (Version 1)
Quarter: 2019Q1

REPORT INFORMATION
  Report Type: Spontaneous
  Country: US (occurrence: US)
  Receive Date: 20190221
  Receipt Date: 20190221
  Transmission Date: 20190418
  Serious: Yes (Other)
  Sender: FDA-Public Use
  Company Number: None

PATIENT
  Age: 63 Year
  Sex: Female

DRUGS (1)
  1. LORCET [Suspect]
     Active Substance: ACETAMINOPHEN\HYDROCODONE BITARTRATE
     Indication: PAIN
     Dates: start: 20190213, end: 20190213

REACTIONS (4)
  - Dyskinesia [None]
  - Tremor [None]
  - Loss of consciousness [None]
  - Feeling abnormal [None]

NARRATIVE: CASE EVENT DATE: 20190213
